FAERS Safety Report 7376427-5 (Version None)
Quarter: 2011Q1

REPORT INFORMATION
  Report Type: 
  Country: None (occurrence: None)
  Receive Date: 20110325
  Receipt Date: 20110315
  Transmission Date: 20110831
  Serious: Yes (Hospitalization, Disabling)
  Sender: FDA-Public Use
  Company Number: JP-BRISTOL-MYERS SQUIBB COMPANY-15204167

PATIENT
  Age: 70 Year
  Sex: Male
  Weight: 63 kg

DRUGS (3)
  1. PLETAL [Concomitant]
     Route: 048
     Dates: start: 20100712
  2. PLAVIX [Concomitant]
     Route: 048
     Dates: start: 20100817
  3. SPRYCEL [Suspect]
     Indication: ACUTE LYMPHOCYTIC LEUKAEMIA
     Dosage: 9JUN-31AUG2010-70MG,1SEP-14OCT2010-50MG, 15OCT-24NOV2010-90MG/2 PER 1 DAY
     Route: 048
     Dates: start: 20100609

REACTIONS (5)
  - RETINAL VEIN OCCLUSION [None]
  - RETINAL ARTERY OCCLUSION [None]
  - CEREBRAL INFARCTION [None]
  - DIVERTICULUM INTESTINAL HAEMORRHAGIC [None]
  - ANAEMIA [None]
